FAERS Safety Report 16521524 (Version 2)
Quarter: 2019Q3

REPORT INFORMATION
  Report Type: Report from Study
  Country: None (occurrence: CA)
  Receive Date: 20190703
  Receipt Date: 20190718
  Transmission Date: 20191004
  Serious: Yes (Hospitalization)
  Sender: FDA-Public Use
  Company Number: CA-ABBVIE-19K-028-2840902-00

PATIENT
  Age: 65 Year
  Sex: Female

DRUGS (1)
  1. HUMIRA [Suspect]
     Active Substance: ADALIMUMAB
     Indication: PSORIASIS
     Route: 058
     Dates: start: 20130326

REACTIONS (4)
  - Fall [Recovered/Resolved]
  - Blood pressure decreased [Unknown]
  - Mobility decreased [Unknown]
  - Head injury [Unknown]

NARRATIVE: CASE EVENT DATE: 201906
